FAERS Safety Report 5140000-X (Version None)
Quarter: 2006Q4

REPORT INFORMATION
  Report Type: 
  Country: None (occurrence: None)
  Receive Date: 20061031
  Receipt Date: 20061018
  Transmission Date: 20070319
  Serious: Yes (Hospitalization)
  Sender: FDA-Public Use
  Company Number: PHHO2006DE17538

PATIENT
  Age: 50 Year
  Sex: Male

DRUGS (9)
  1. ZONEGRAN [Suspect]
     Indication: EPILEPSY
     Dosage: 50 MG, QD
     Route: 048
     Dates: start: 20060823, end: 20060829
  2. ZONEGRAN [Suspect]
     Dosage: 100 MG, QD
     Route: 048
     Dates: start: 20060830, end: 20060911
  3. ZONEGRAN [Suspect]
     Dosage: UNK, NO TREATMENT
     Dates: start: 20060912, end: 20060919
  4. ZONEGRAN [Suspect]
     Dosage: 100 MG, QD
     Route: 048
     Dates: start: 20060920, end: 20060920
  5. ZONEGRAN [Suspect]
     Dosage: 200 MG, QD
     Route: 048
     Dates: start: 20060921
  6. VALPROIC ACID [Suspect]
     Dosage: 2.7 G, QD
     Route: 048
  7. TEGRETOL [Suspect]
     Indication: EPILEPSY
     Dosage: 1.6 G, QD
     Route: 048
     Dates: start: 20040101, end: 20060911
  8. TEGRETOL [Suspect]
     Dosage: 1.4 G, QD
     Route: 048
     Dates: start: 20060912, end: 20060916
  9. TEGRETOL [Suspect]
     Dosage: 1.6 G, QD
     Route: 048
     Dates: start: 20060917

REACTIONS (6)
  - CEREBELLAR SYNDROME [None]
  - DIPLOPIA [None]
  - DRUG INTERACTION [None]
  - DRUG TOXICITY [None]
  - GAIT DISTURBANCE [None]
  - NYSTAGMUS [None]
